FAERS Safety Report 9853646 (Version 2)
Quarter: 2014Q1

REPORT INFORMATION
  Report Type: Spontaneous
  Country: US (occurrence: US)
  Receive Date: 20140129
  Receipt Date: 20140323
  Transmission Date: 20141002
  Serious: No
  Sender: FDA-Public Use
  Company Number: US-TEVA-455883USA

PATIENT
  Sex: Female

DRUGS (2)
  1. QNASL [Suspect]
     Route: 045
  2. NASONEX [Suspect]
     Route: 045

REACTIONS (5)
  - Device malfunction [Recovered/Resolved]
  - Hypersensitivity [Unknown]
  - Dysphagia [Unknown]
  - Inflammation [Unknown]
  - Throat irritation [Unknown]
